FAERS Safety Report 24306206 (Version 2)
Quarter: 2024Q4

REPORT INFORMATION
  Report Type: Spontaneous
  Country: US (occurrence: US)
  Receive Date: 20240911
  Receipt Date: 20241001
  Transmission Date: 20250114
  Serious: Yes (Other)
  Sender: AMGEN
  Company Number: US-AMGEN-USASP2024179334

PATIENT
  Age: 65 Year
  Sex: Female
  Weight: 69.853 kg

DRUGS (1)
  1. REPATHA [Suspect]
     Active Substance: EVOLOCUMAB
     Indication: Coronary artery disease
     Dosage: UNK
     Route: 058

REACTIONS (1)
  - Amyotrophic lateral sclerosis [Unknown]
